FAERS Safety Report 24210069 (Version 2)
Quarter: 2024Q4

REPORT INFORMATION
  Report Type: Spontaneous
  Country: US (occurrence: US)
  Receive Date: 20240814
  Receipt Date: 20241016
  Transmission Date: 20250115
  Serious: Yes (Other)
  Sender: Karo Pharma
  Company Number: US-Karo Pharma-2160186

PATIENT
  Age: 37 Year
  Sex: Female

DRUGS (1)
  1. TERBINAFINE [Suspect]
     Active Substance: TERBINAFINE\TERBINAFINE HYDROCHLORIDE
     Indication: Product used for unknown indication

REACTIONS (2)
  - Psoriasis [Unknown]
  - Drug interaction [Unknown]
